FAERS Safety Report 9505747 (Version 1)
Quarter: 2013Q1

REPORT INFORMATION
  Report Type: Spontaneous
  Country: US (occurrence: None)
  Receive Date: 20130220
  Receipt Date: 20130220
  Transmission Date: 20140127
  Serious: No
  Sender: FDA-Public Use
  Company Number: 1000040705

PATIENT
  Age: 58 Year
  Sex: Female

DRUGS (5)
  1. VIIBRYD [Suspect]
     Indication: PAIN
     Route: 048
     Dates: start: 20121114, end: 20121120
  2. VIIBRYD [Suspect]
     Route: 048
     Dates: start: 20121121, end: 20121126
  3. LASIX (FUROSEMIDE) (FUROSEMIDE) [Concomitant]
  4. LORAZEPAM (LORAZEPAM) (LORAZEPAM) [Concomitant]
  5. ROBAXIN (METHOCRBAMOL) (METHOCARBAMOL) [Concomitant]

REACTIONS (5)
  - Pollakiuria [None]
  - Bladder spasm [None]
  - Fatigue [None]
  - Somnolence [None]
  - Off label use [None]
